FAERS Safety Report 14585882 (Version 1)
Quarter: 2018Q1

REPORT INFORMATION
  Report Type: Spontaneous
  Country: AU (occurrence: AU)
  Receive Date: 20180301
  Receipt Date: 20180301
  Transmission Date: 20180509
  Serious: Yes (Hospitalization, Other)
  Sender: FDA-Public Use
  Company Number: AU-LUPIN (EUROPE) LIMITED-2016-02847

PATIENT
  Age: 73 Year
  Sex: Male

DRUGS (4)
  1. PARACETAMOL [Suspect]
     Active Substance: ACETAMINOPHEN
     Indication: PAIN
     Dosage: 1 G,TID,
     Route: 048
  2. FLUCLOXACILINA (FLUCLOXACILIN) (NOT SPECIFIED) [Suspect]
     Active Substance: FLUCLOXACILLIN
     Indication: STAPHYLOCOCCAL BACTERAEMIA
     Dosage: 2 G,QID,
     Route: 042
  3. CIPROFLOXACIN. [Suspect]
     Active Substance: CIPROFLOXACIN
     Indication: MORGANELLA INFECTION
     Dosage: 2-WEEK COURSE
     Route: 048
  4. FLUCLOXACILINA (FLUCLOXACILIN) (NOT SPECIFIED) [Suspect]
     Active Substance: FLUCLOXACILLIN
     Indication: ENDOCARDITIS

REACTIONS (1)
  - Metabolic acidosis [Recovered/Resolved]
